FAERS Safety Report 11058514 (Version 1)
Quarter: 2015Q2

REPORT INFORMATION
  Report Type: Spontaneous
  Country: US (occurrence: None)
  Receive Date: 20150422
  Receipt Date: 20150422
  Transmission Date: 20150821
  Serious: Yes (Life-Threatening)
  Sender: FDA-Public Use
  Company Number: None

PATIENT
  Age: 58 Year
  Sex: Male
  Weight: 148 kg

DRUGS (2)
  1. PRAZOSIN [Suspect]
     Active Substance: PRAZOSIN
     Indication: POST-TRAUMATIC STRESS DISORDER
     Route: 048
     Dates: start: 20100601, end: 20100812
  2. PRAZOSIN [Suspect]
     Active Substance: PRAZOSIN
     Indication: DEPRESSION
     Route: 048
     Dates: start: 20100601, end: 20100812

REACTIONS (3)
  - Flank pain [None]
  - Urinary hesitation [None]
  - Priapism [None]

NARRATIVE: CASE EVENT DATE: 20100812
